FAERS Safety Report 6942609-7 (Version None)
Quarter: 2010Q3

REPORT INFORMATION
  Report Type: 
  Country: None (occurrence: None)
  Receive Date: 20100826
  Receipt Date: 20100816
  Transmission Date: 20110219
  Serious: Yes (Hospitalization)
  Sender: FDA-Public Use
  Company Number: US-SANOFI-AVENTIS-2010SA049274

PATIENT
  Age: 66 Year
  Sex: Male

DRUGS (9)
  1. MULTAQ [Suspect]
     Indication: ATRIAL FIBRILLATION
     Route: 048
     Dates: start: 20100709, end: 20100803
  2. PLAVIX [Suspect]
     Indication: CEREBROVASCULAR ACCIDENT PROPHYLAXIS
     Route: 048
     Dates: start: 20100709, end: 20100801
  3. DIGOXIN [Suspect]
     Indication: ATRIAL FIBRILLATION
     Route: 065
     Dates: start: 20100709
  4. SIMVASTATIN [Concomitant]
  5. ASPIRIN [Concomitant]
  6. MULTI-VITAMINS [Concomitant]
  7. CELEBREX [Concomitant]
  8. FINASTERIDE [Concomitant]
  9. LOPRESSOR [Concomitant]

REACTIONS (3)
  - HYPOAESTHESIA [None]
  - PAIN IN EXTREMITY [None]
  - URTICARIA [None]
